FAERS Safety Report 8800873 (Version 1)
Quarter: 2012Q4

REPORT INFORMATION
  Report Type: 
  Country: US (occurrence: US)
  Receive Date: 20120921
  Receipt Date: 20120921
  Transmission Date: 20130627
  Serious: Yes (Death)
  Sender: FDA-Public Use
  Company Number: US-PFIZER INC-2012002304

PATIENT
  Age: 80 Year
  Sex: Female

DRUGS (15)
  1. XALKORI [Suspect]
     Indication: LUNG NEOPLASM MALIGNANT
     Dosage: 250 mg, 2x/day
     Route: 048
     Dates: start: 20101108, end: 201201
  2. ONDANSETRON [Concomitant]
  3. NITROGLYCERIN [Concomitant]
  4. SENNA [Concomitant]
  5. OMEPRAZOLE [Concomitant]
  6. DILTIAZEM [Concomitant]
  7. EFFIENT [Concomitant]
  8. SODIUM CHLORIDE [Concomitant]
  9. CRESTOR [Concomitant]
  10. VITAMIN D [Concomitant]
  11. COLACE [Concomitant]
  12. METOPROLOL [Concomitant]
  13. RANEXA [Concomitant]
  14. ECOTRIN [Concomitant]
  15. ISOSORBIDE [Concomitant]

REACTIONS (1)
  - Death [Fatal]
